FAERS Safety Report 21800411 (Version 1)
Quarter: 2022Q4

REPORT INFORMATION
  Report Type: Spontaneous
  Country: US (occurrence: None)
  Receive Date: 20221229
  Receipt Date: 20221229
  Transmission Date: 20230113
  Serious: Yes (unspecified)
  Sender: FDA-Public Use
  Company Number: None

PATIENT
  Age: 72 Year
  Sex: Female
  Weight: 57 kg

DRUGS (1)
  1. NEULASTA [Suspect]
     Active Substance: PEGFILGRASTIM
     Indication: Prostate cancer
     Dosage: 6 MG ONCE  SUBCUTANEOUS
     Dates: start: 20221202

REACTIONS (3)
  - Neutrophil count decreased [None]
  - Device alarm issue [None]
  - Neutrophil count increased [None]

NARRATIVE: CASE EVENT DATE: 20221202
